FAERS Safety Report 4622919-9 (Version None)
Quarter: 2005Q1

REPORT INFORMATION
  Report Type: 
  Country: None (occurrence: None)
  Receive Date: 20050329
  Receipt Date: 20050324
  Transmission Date: 20050727
  Serious: Yes (Hospitalization)
  Sender: FDA-Public Use
  Company Number: THQ2005A00077

PATIENT
  Age: 85 Year
  Sex: Female

DRUGS (5)
  1. ZOTON CAPSULES (LANSOPRAZOLE) (CAPSULES) [Suspect]
     Indication: ABDOMINAL PAIN UPPER
     Dates: start: 20040901
  2. QUININE SULPHATE (QUININE SULFATE) [Concomitant]
  3. TOLTERODINE [Concomitant]
  4. B12 (CYANOBCOBALAMIN) [Concomitant]
  5. OXYBUTYNIN [Concomitant]

REACTIONS (7)
  - BALANCE DISORDER [None]
  - BLADDER DISORDER [None]
  - BRAIN DAMAGE [None]
  - HYPOTRICHOSIS [None]
  - MUSCLE SPASMS [None]
  - PERNICIOUS ANAEMIA [None]
  - WRIST FRACTURE [None]
